FAERS Safety Report 20019662 (Version 1)
Quarter: 2021Q4

REPORT INFORMATION
  Report Type: Spontaneous
  Country: US (occurrence: US)
  Receive Date: 20211101
  Receipt Date: 20211101
  Transmission Date: 20220303
  Serious: No
  Sender: FDA-Public Use
  Company Number: US-VIIV HEALTHCARE LIMITED-US2021AMR222630

PATIENT
  Sex: Male

DRUGS (1)
  1. ZIDOVUDINE [Suspect]
     Active Substance: ZIDOVUDINE
     Indication: HIV infection
     Dosage: 1500 MG, QD
     Dates: start: 1987

REACTIONS (2)
  - Bone marrow transplant [Unknown]
  - Drug ineffective [Unknown]
